FAERS Safety Report 20324209 (Version 1)
Quarter: 2022Q1

REPORT INFORMATION
  Report Type: Spontaneous
  Country: CA (occurrence: CA)
  Receive Date: 20220111
  Receipt Date: 20220111
  Transmission Date: 20220423
  Serious: Yes (Hospitalization)
  Sender: FDA-Public Use
  Company Number: CA-TEVA-2022-CA-1997503

PATIENT
  Age: 37 Year
  Sex: Female
  Weight: 71 kg

DRUGS (22)
  1. ONDANSETRON [Suspect]
     Active Substance: ONDANSETRON
     Indication: Vomiting
     Dosage: 24 MILLIGRAM DAILY;
     Route: 048
  2. ONDANSETRON [Suspect]
     Active Substance: ONDANSETRON
     Indication: Nausea
     Route: 048
  3. ONDANSETRON [Suspect]
     Active Substance: ONDANSETRON
     Indication: Nausea
     Route: 042
  4. ONDANSETRON [Suspect]
     Active Substance: ONDANSETRON
     Indication: Vomiting
     Dosage: 24 MILLIGRAM DAILY;
     Route: 042
  5. ONDANSETRON [Suspect]
     Active Substance: ONDANSETRON
     Dosage: 12 MILLIGRAM DAILY;
     Route: 042
  6. ASPIRIN [Concomitant]
     Active Substance: ASPIRIN
     Route: 065
  7. BETAMETHASONE [Concomitant]
     Active Substance: BETAMETHASONE
     Route: 061
  8. DICLECTIN [Concomitant]
     Active Substance: DOXYLAMINE SUCCINATE\PYRIDOXINE HYDROCHLORIDE
     Route: 065
  9. DIPHTHERIA TOXOID ADSORBED/PERTUSSIS VACCINE/TETANUS VACCINE [Concomitant]
     Route: 065
  10. HEPARIN [Concomitant]
     Active Substance: HEPARIN SODIUM
     Route: 042
  11. INSULIN NOS [Concomitant]
     Active Substance: INSULIN NOS
     Route: 065
  12. ISOPHANE INSULIN [Concomitant]
     Active Substance: INSULIN NOS
     Route: 065
  13. LABETALOL [Concomitant]
     Active Substance: LABETALOL\LABETALOL HYDROCHLORIDE
     Route: 065
  14. POLYETHYLENE GLYCOLS [Concomitant]
     Active Substance: POLYETHYLENE GLYCOLS
     Route: 065
  15. NIFEDIPINE [Concomitant]
     Active Substance: NIFEDIPINE
     Route: 065
  16. NOVORAPID [Concomitant]
     Active Substance: INSULIN ASPART
     Route: 058
  17. OMEPRAZOLE [Concomitant]
     Active Substance: OMEPRAZOLE
     Route: 065
  18. OXAZEPAM [Concomitant]
     Active Substance: OXAZEPAM
     Route: 065
  19. PANTOPRAZOLE [Concomitant]
     Active Substance: PANTOPRAZOLE
     Route: 065
  20. POTASSIUM CHLORIDE [Concomitant]
     Active Substance: POTASSIUM CHLORIDE
     Route: 065
  21. RANITIDINE [Concomitant]
     Active Substance: RANITIDINE
     Route: 065
  22. SENNOSIDES [Concomitant]
     Active Substance: SENNOSIDES
     Route: 065

REACTIONS (2)
  - Hepatic enzyme increased [Unknown]
  - Exposure during pregnancy [Unknown]
